FAERS Safety Report 9355937 (Version 1)
Quarter: 2013Q2

REPORT INFORMATION
  Report Type: Spontaneous
  Country: IE (occurrence: IE)
  Receive Date: 20130619
  Receipt Date: 20130619
  Transmission Date: 20140414
  Serious: Yes (Other)
  Sender: FDA-Public Use
  Company Number: IE-ROCHE-1238863

PATIENT
  Sex: Male

DRUGS (1)
  1. LARIAM [Suspect]
     Indication: MALARIA
     Route: 065
     Dates: start: 2002, end: 2003

REACTIONS (6)
  - Depression [Unknown]
  - Suicidal ideation [Unknown]
  - Confusional state [Unknown]
  - Panic reaction [Unknown]
  - Disorientation [Unknown]
  - Disturbance in attention [Unknown]
